FAERS Safety Report 6628881-1 (Version None)
Quarter: 2010Q1

REPORT INFORMATION
  Report Type: 
  Country: None (occurrence: None)
  Receive Date: 20100311
  Receipt Date: 20100303
  Transmission Date: 20100710
  Serious: Yes (Hospitalization)
  Sender: FDA-Public Use
  Company Number: GXKR2010US02583

PATIENT
  Age: 70 Year
  Sex: Male

DRUGS (10)
  1. WARFARIN (NGX) [Suspect]
     Indication: ANTICOAGULANT THERAPY
     Dosage: 36 MG, WEEKLY
     Route: 048
     Dates: start: 20070401
  2. WARFARIN (NGX) [Interacting]
     Indication: ATRIAL FIBRILLATION
     Dosage: 3 MG/DAY
     Route: 048
  3. WARFARIN (NGX) [Interacting]
     Dosage: 36 MG/WEEK
     Route: 048
     Dates: start: 20071101
  4. SORAFENIB [Interacting]
     Indication: HEPATIC NEOPLASM MALIGNANT
     Dosage: 200 MG/DAY
     Route: 065
     Dates: start: 20070921
  5. SORAFENIB [Interacting]
     Dosage: 200 MG/DAY
     Route: 048
     Dates: start: 20071120, end: 20071213
  6. ESOMEPRAZOLE [Concomitant]
     Dosage: 40 MG, QD
     Route: 048
  7. DIGOXIN [Concomitant]
     Dosage: 0.125 MG, QD
     Route: 048
  8. ACETYLSALICYLIC ACID [Concomitant]
     Dosage: 325 MG, QD
     Route: 065
  9. METOPROLOL [Concomitant]
     Dosage: 100 MG, BID
     Route: 048
  10. FUROSEMIDE [Concomitant]
     Dosage: 40 MG, QD
     Route: 048

REACTIONS (6)
  - DRUG INTERACTION [None]
  - DRUG TOXICITY [None]
  - HAEMORRHAGE [None]
  - INTERNATIONAL NORMALISED RATIO INCREASED [None]
  - MUSCLE TIGHTNESS [None]
  - MYALGIA [None]
